FAERS Safety Report 9511596 (Version 1)
Quarter: 2013Q3

REPORT INFORMATION
  Report Type: Spontaneous
  Country: US (occurrence: US)
  Receive Date: 20130910
  Receipt Date: 20130910
  Transmission Date: 20140515
  Serious: Yes (Other)
  Sender: FDA-Public Use
  Company Number: PHEH2013US018698

PATIENT
  Sex: Female

DRUGS (9)
  1. RECLAST [Suspect]
     Indication: OSTEOPOROSIS
     Dosage: UNK UKN, UNK
     Route: 042
     Dates: start: 201109
  2. RECLAST [Suspect]
     Dosage: UNK UKN, UNK
     Route: 042
     Dates: start: 201304
  3. ATARAX//HYDROXYZINE [Concomitant]
     Dosage: UNK UKN, UNK
  4. FLURBIPROFEN [Concomitant]
     Dosage: UNK UKN, UNK
  5. PLAQUENIL [Concomitant]
     Indication: SWELLING
     Dosage: UNK UKN, UNK
  6. PLAQUENIL [Concomitant]
     Indication: ARTHRALGIA
  7. OS-CAL [Concomitant]
     Dosage: UNK UKN, UNK
  8. CALCIUM [Concomitant]
     Dosage: UNK UKN, UNK
  9. MULTAMIN//VITAMINS NOS [Concomitant]
     Dosage: UNK UKN, UNK

REACTIONS (6)
  - Autoimmune disorder [Unknown]
  - Peripheral vascular disorder [Unknown]
  - Temporal arteritis [Unknown]
  - Pruritus [Unknown]
  - Hyperhidrosis [Unknown]
  - Malaise [Unknown]
